FAERS Safety Report 5503766-2 (Version None)
Quarter: 2007Q4

REPORT INFORMATION
  Report Type: 
  Country: None (occurrence: None)
  Receive Date: 20071030
  Receipt Date: 20071030
  Transmission Date: 20080405
  Serious: Yes (Life-Threatening)
  Sender: FDA-Public Use
  Company Number: None

PATIENT
  Sex: Female
  Weight: 68.0396 kg

DRUGS (3)
  1. PROAIR HFA [Suspect]
     Indication: ASTHMA
     Dosage: PRN/2 PUFFS
     Dates: start: 20060101, end: 20070501
  2. PROVENTIL-HFA [Suspect]
     Dosage: PRN/2 PUFFS
  3. FLOVENT HFA [Concomitant]

REACTIONS (5)
  - CHEMICAL BURN OF SKIN [None]
  - CONDITION AGGRAVATED [None]
  - DRUG INEFFECTIVE [None]
  - NAUSEA [None]
  - PHARMACEUTICAL PRODUCT COMPLAINT [None]
